FAERS Safety Report 16924496 (Version 1)
Quarter: 2019Q4

REPORT INFORMATION
  Report Type: Spontaneous
  Country: US (occurrence: US)
  Receive Date: 20191016
  Receipt Date: 20191016
  Transmission Date: 20200122
  Serious: No
  Sender: FDA-Public Use
  Company Number: US-B.I. PHARMACEUTICALS,INC./RIDGEFIELD-2019-US-107896

PATIENT
  Age: 72 Year
  Sex: Female

DRUGS (2)
  1. TRADJENTA [Suspect]
     Active Substance: LINAGLIPTIN
     Indication: TYPE 2 DIABETES MELLITUS
     Dosage: 5 MG DAILY
     Route: 065
     Dates: start: 2017, end: 2019
  2. TRADJENTA [Suspect]
     Active Substance: LINAGLIPTIN
     Dosage: 5 MG THREE TIMES A WEEK
     Route: 065
     Dates: start: 2019

REACTIONS (1)
  - Gout [Unknown]

NARRATIVE: CASE EVENT DATE: 2019
